FAERS Safety Report 11805133 (Version 2)
Quarter: 2015Q4

REPORT INFORMATION
  Report Type: Report from Study
  Country: US (occurrence: US)
  Receive Date: 20151206
  Receipt Date: 20151221
  Transmission Date: 20160305
  Serious: No
  Sender: FDA-Public Use
  Company Number: US-AMGEN-USASL2015125329

PATIENT
  Age: 52 Year
  Sex: Female

DRUGS (1)
  1. ENBREL [Suspect]
     Active Substance: ETANERCEPT
     Indication: PSORIATIC ARTHROPATHY
     Dosage: 50 MG, QWK
     Route: 065
     Dates: start: 20151107

REACTIONS (8)
  - Injection related reaction [Unknown]
  - Injection site erythema [Unknown]
  - Erythema [Unknown]
  - Injection site bruising [Unknown]
  - Pruritus [Unknown]
  - Psoriasis [Unknown]
  - Injection site reaction [Unknown]
  - Injection site recall reaction [Unknown]

NARRATIVE: CASE EVENT DATE: 2015
